FAERS Safety Report 8591408-1 (Version None)
Quarter: 2012Q3

REPORT INFORMATION
  Report Type: 
  Country: None (occurrence: None)
  Receive Date: 20120801
  Receipt Date: 20120717
  Transmission Date: 20120928
  Serious: Yes (Death)
  Sender: FDA-Public Use
  Company Number: JPI-P-019963

PATIENT
  Age: 85 Year
  Sex: Female

DRUGS (4)
  1. XYREM [Suspect]
     Indication: CATAPLEXY
     Dosage: 4.5 GM (2.25 GM, 2 IN 1 D), ORAL : 6 GM (3 GM,2 IN 1 D), ORAL
     Route: 048
     Dates: start: 20070209
  2. XYREM [Suspect]
     Indication: CATAPLEXY
     Dosage: 4.5 GM (2.25 GM, 2 IN 1 D), ORAL : 6 GM (3 GM,2 IN 1 D), ORAL
     Route: 048
     Dates: start: 20070101, end: 20120219
  3. DEXTROAMPHETAMINE [Concomitant]
  4. LEVOTHYROXINE SODIUM [Concomitant]

REACTIONS (1)
  - DRUG ADMINISTRATION ERROR [None]
